FAERS Safety Report 26134916 (Version 1)
Quarter: 2025Q4

REPORT INFORMATION
  Report Type: Spontaneous
  Country: GB (occurrence: GB)
  Receive Date: 20251209
  Receipt Date: 20251209
  Transmission Date: 20260117
  Serious: Yes (Other)
  Sender: MYLAN
  Company Number: GB-MYLANLABS-2025M1051985

PATIENT
  Sex: Male

DRUGS (1)
  1. CLOZARIL [Suspect]
     Active Substance: CLOZAPINE
     Indication: Schizophrenia
     Dosage: UNK

REACTIONS (7)
  - Anaemia [Unknown]
  - Balance disorder [Unknown]
  - Malaise [Unknown]
  - Fatigue [Unknown]
  - Dysarthria [Unknown]
  - Blood pressure decreased [Unknown]
  - Treatment noncompliance [Unknown]
